FAERS Safety Report 7888145-5 (Version None)
Quarter: 2011Q4

REPORT INFORMATION
  Report Type: 
  Country: None (occurrence: None)
  Receive Date: 20111103
  Receipt Date: 20111021
  Transmission Date: 20120403
  Serious: Yes (Hospitalization, Other)
  Sender: FDA-Public Use
  Company Number: US-BAYER-2011-042464

PATIENT
  Age: 30 Year
  Sex: Female
  Weight: 77.098 kg

DRUGS (3)
  1. YAZ [Suspect]
     Indication: CONTRACEPTION
     Dosage: UNK
     Dates: start: 20080101, end: 20100101
  2. FLUOXETINE HCL [Concomitant]
     Dosage: 20 MG, QD
  3. YAZ [Suspect]
     Indication: PREMENSTRUAL SYNDROME

REACTIONS (3)
  - CHOLECYSTITIS ACUTE [None]
  - PAIN [None]
  - CHOLECYSTECTOMY [None]
